FAERS Safety Report 4788052-0 (Version None)
Quarter: 2005Q4

REPORT INFORMATION
  Report Type: 
  Country: None (occurrence: None)
  Receive Date: 20051004
  Receipt Date: 20051004
  Transmission Date: 20060501
  Serious: Yes (Other)
  Sender: FDA-Public Use
  Company Number: None

PATIENT
  Sex: Female
  Weight: 70.3075 kg

DRUGS (1)
  1. FEXOFENADINE    180MG    GENERIC [Suspect]
     Indication: SEASONAL ALLERGY
     Dosage: ONE BY MOUTH     EVERY DAY
     Route: 048
     Dates: start: 20050929, end: 20051003

REACTIONS (9)
  - CONDITION AGGRAVATED [None]
  - EAR DISCOMFORT [None]
  - EYE PRURITUS [None]
  - PHARMACEUTICAL PRODUCT COMPLAINT [None]
  - PHARYNGOLARYNGEAL PAIN [None]
  - PRURITUS [None]
  - SEASONAL ALLERGY [None]
  - SINUS OPERATION [None]
  - THERAPEUTIC RESPONSE UNEXPECTED WITH DRUG SUBSTITUTION [None]
